FAERS Safety Report 13840566 (Version 8)
Quarter: 2020Q3

REPORT INFORMATION
  Report Type: Spontaneous
  Country: US (occurrence: US)
  Receive Date: 20170807
  Receipt Date: 20200805
  Transmission Date: 20201102
  Serious: Yes (Hospitalization, Other)
  Sender: FDA-Public Use
  Company Number: US-VIFOR (INTERNATIONAL) INC.-VIT-2017-08040

PATIENT
  Age: 90 Year
  Sex: Female
  Weight: 63.56 kg

DRUGS (15)
  1. OYSCO [Concomitant]
  2. ALENDRONATE SODIUM. [Concomitant]
     Active Substance: ALENDRONATE SODIUM
  3. VELTASSA [Suspect]
     Active Substance: PATIROMER
     Indication: HYPERKALAEMIA
     Route: 048
     Dates: start: 20160209
  4. SIMVASTATIN. [Concomitant]
     Active Substance: SIMVASTATIN
  5. NIFEDIPINE. [Concomitant]
     Active Substance: NIFEDIPINE
  6. VELTASSA [Suspect]
     Active Substance: PATIROMER
     Route: 048
  7. NOVOLIN NOS [Concomitant]
     Active Substance: INSULIN HUMAN
     Dosage: 70/30
  8. ALLOPURINOL. [Concomitant]
     Active Substance: ALLOPURINOL
  9. VITAMIN D3 [Concomitant]
     Active Substance: CHOLECALCIFEROL
  10. PANTOPRAZOLE SODIUM. [Concomitant]
     Active Substance: PANTOPRAZOLE SODIUM
  11. KIONEX [Concomitant]
     Active Substance: SODIUM POLYSTYRENE SULFONATE
  12. VELTASSA [Suspect]
     Active Substance: PATIROMER
     Route: 048
     Dates: start: 20170523, end: 201906
  13. FUROSEMIDE. [Concomitant]
     Active Substance: FUROSEMIDE
  14. ASPIRIN. [Concomitant]
     Active Substance: ASPIRIN
  15. LISINOPRIL. [Concomitant]
     Active Substance: LISINOPRIL

REACTIONS (12)
  - Emergency care [Unknown]
  - Blood potassium increased [Unknown]
  - Urinary tract infection [Unknown]
  - Chronic kidney disease [Unknown]
  - Physical deconditioning [Unknown]
  - Cardiac failure congestive [Unknown]
  - Blood potassium abnormal [Recovered/Resolved]
  - Illness [Recovered/Resolved]
  - Dehydration [Unknown]
  - Nausea [Unknown]
  - Product dose omission issue [Unknown]
  - Fluid retention [Recovered/Resolved]

NARRATIVE: CASE EVENT DATE: 2017
